FAERS Safety Report 7826906-9 (Version None)
Quarter: 2011Q4

REPORT INFORMATION
  Report Type: 
  Country: None (occurrence: None)
  Receive Date: 20111019
  Receipt Date: 20111019
  Transmission Date: 20120403
  Serious: Yes (Other)
  Sender: FDA-Public Use
  Company Number: None

PATIENT
  Age: 81 Year
  Sex: Male
  Weight: 95.2554 kg

DRUGS (1)
  1. ARICEPT [Suspect]
     Indication: AMNESIA
     Dosage: 1 AT NIGHT

REACTIONS (11)
  - ANGER [None]
  - HALLUCINATION [None]
  - PARANOIA [None]
  - LETHARGY [None]
  - DELUSION [None]
  - PANIC REACTION [None]
  - AGGRESSION [None]
  - ANXIETY [None]
  - DEPRESSION [None]
  - PAIN IN EXTREMITY [None]
  - FATIGUE [None]
